FAERS Safety Report 13686355 (Version 1)
Quarter: 2017Q2

REPORT INFORMATION
  Report Type: Spontaneous
  Country: US (occurrence: US)
  Receive Date: 20170623
  Receipt Date: 20170623
  Transmission Date: 20170830
  Serious: Yes (Hospitalization)
  Sender: FDA-Public Use
  Company Number: US-ROCHE-1150404

PATIENT
  Age: 65 Year
  Sex: Male

DRUGS (1)
  1. CELLCEPT [Suspect]
     Active Substance: MYCOPHENOLATE MOFETIL\MYCOPHENOLATE MOFETIL HYDROCHLORIDE
     Indication: RENAL TRANSPLANT
     Route: 048

REACTIONS (5)
  - Pleural effusion [Recovered/Resolved]
  - Gastric ulcer [Unknown]
  - Haemorrhagic ascites [Unknown]
  - Haemothorax [Not Recovered/Not Resolved]
  - Oesophageal carcinoma [Unknown]

NARRATIVE: CASE EVENT DATE: 201211
